FAERS Safety Report 8069079-2 (Version None)
Quarter: 2012Q1

REPORT INFORMATION
  Report Type: 
  Country: None (occurrence: None)
  Receive Date: 20120125
  Receipt Date: 20120123
  Transmission Date: 20120608
  Serious: Yes (Death)
  Sender: FDA-Public Use
  Company Number: PHHY2012GB005970

PATIENT

DRUGS (7)
  1. VINCRISTINE [Suspect]
     Dosage: UNK
  2. OXALIPLATIN [Suspect]
     Dosage: UNK
  3. THALIDOMIDE [Suspect]
     Dosage: UNK
  4. CARBOPLATIN [Suspect]
     Dosage: UNK
  5. BORTEZOMIB [Suspect]
  6. DOCETAXEL [Suspect]
     Dosage: UNK
  7. PACLITAXEL [Suspect]
     Dosage: UNK

REACTIONS (2)
  - NEUROPATHY PERIPHERAL [None]
  - DEATH [None]
